FAERS Safety Report 7050027-9 (Version None)
Quarter: 2010Q4

REPORT INFORMATION
  Report Type: 
  Country: None (occurrence: None)
  Receive Date: 20101018
  Receipt Date: 20100929
  Transmission Date: 20110411
  Serious: Yes (Other)
  Sender: FDA-Public Use
  Company Number: US-BAYER-201022979NA

PATIENT
  Age: 31 Year
  Sex: Female
  Weight: 50 kg

DRUGS (10)
  1. OCELLA [Suspect]
     Indication: CONTRACEPTION
     Route: 048
     Dates: start: 20070101, end: 20080101
  2. YAZ [Suspect]
     Indication: PRODUCT USED FOR UNKNOWN INDICATION
     Route: 048
     Dates: start: 20070101, end: 20080101
  3. YASMIN [Suspect]
     Indication: CONTRACEPTION
     Route: 048
     Dates: start: 20070101, end: 20080101
  4. IBUPROFEN [Concomitant]
     Route: 065
  5. CORGARD [Concomitant]
     Route: 065
     Dates: start: 20070101
  6. ASCORBIC ACID [Concomitant]
     Route: 065
  7. BENEDROX [Concomitant]
  8. COMPAZINE [Concomitant]
  9. SUPPLEMENTS [Concomitant]
     Dates: start: 20070601
  10. PROTEIN SHAKES [Concomitant]
     Dates: start: 20070601

REACTIONS (9)
  - ABDOMINAL PAIN LOWER [None]
  - APHAGIA [None]
  - DYSPNOEA [None]
  - EYE PAIN [None]
  - GALLBLADDER DISORDER [None]
  - NAUSEA [None]
  - POST CHOLECYSTECTOMY SYNDROME [None]
  - VOMITING [None]
  - WEIGHT DECREASED [None]
